FAERS Safety Report 7799630 (Version 5)
Quarter: 2013Q2

REPORT INFORMATION
  Report Type: Report from Study
  Country: JP (occurrence: JP)
  Receive Date: 20110204
  Receipt Date: 20130430
  Transmission Date: 20140414
  Serious: Yes (Death, Hospitalization)
  Sender: FDA-Public Use
  Company Number: PHHY2011JP06421

PATIENT
  Age: 62 Year
  Sex: Male

DRUGS (5)
  1. AMN107 [Suspect]
     Indication: CHRONIC MYELOID LEUKAEMIA
     Dosage: 800 MG, QD
     Route: 048
     Dates: start: 20090623, end: 20111025
  2. SELBEX [Concomitant]
     Indication: PROPHYLAXIS
     Dosage: 1.5 G
     Route: 048
     Dates: start: 20090804, end: 20111025
  3. GAMOFA D [Concomitant]
     Indication: PROPHYLAXIS
     Dosage: 40 MG
     Dates: start: 20090812
  4. GASTER D [Concomitant]
     Indication: PROPHYLAXIS
     Dosage: 40 MG
     Route: 048
     Dates: start: 20111025
  5. PLETAAL [Concomitant]
     Dosage: 200 MG
     Route: 048
     Dates: start: 20111025

REACTIONS (4)
  - Renal artery stenosis [Fatal]
  - Cerebral infarction [Recovering/Resolving]
  - Hypoacusis [Recovered/Resolved]
  - Red blood cell count decreased [Not Recovered/Not Resolved]
